FAERS Safety Report 25267072 (Version 1)
Quarter: 2025Q2

REPORT INFORMATION
  Report Type: Spontaneous
  Country: US (occurrence: None)
  Receive Date: 20250505
  Receipt Date: 20250505
  Transmission Date: 20250717
  Serious: Yes (Hospitalization, Other)
  Sender: NATCO PHARMA
  Company Number: US-NATCOUSA-2025-NATCOUSA-000284

PATIENT
  Age: 60 Year
  Sex: Male

DRUGS (1)
  1. CITALOPRAM [Suspect]
     Active Substance: CITALOPRAM
     Indication: Suicide attempt
     Route: 065

REACTIONS (5)
  - Suicide attempt [Unknown]
  - Intestinal pseudo-obstruction [Unknown]
  - Respiratory distress [Unknown]
  - Serotonin syndrome [Unknown]
  - Intentional overdose [Unknown]
